FAERS Safety Report 17283725 (Version 3)
Quarter: 2020Q1

REPORT INFORMATION
  Report Type: Spontaneous
  Country: JP (occurrence: JP)
  Receive Date: 20200117
  Receipt Date: 20200218
  Transmission Date: 20200409
  Serious: Yes (Life-Threatening, Hospitalization)
  Sender: FDA-Public Use
  Company Number: JP-PFIZER INC-2020017630

PATIENT
  Age: 72 Year
  Sex: Male
  Weight: 47 kg

DRUGS (13)
  1. GLUCOBAY [Concomitant]
     Active Substance: ACARBOSE
     Dosage: 1 DF, 3X/DAY
  2. TAKECAB [Concomitant]
     Active Substance: VONOPRAZAN FUMURATE
     Dosage: 10 MG, 1X/DAY (AFTER SUPPER)
  3. RHEUMATREX [Suspect]
     Active Substance: METHOTREXATE SODIUM
     Indication: RHEUMATOID ARTHRITIS
     Dosage: 8 MG, WEEKLY (4 MG TWICE A DAY ON EVERY TUESDAY)
     Route: 048
     Dates: end: 20190516
  4. JANUVIA [Concomitant]
     Active Substance: SITAGLIPTIN PHOSPHATE
     Dosage: UNK  (IN THE MORNING)
  5. PRAVASTATIN. [Concomitant]
     Active Substance: PRAVASTATIN
     Dosage: UNK
  6. BISONO [Concomitant]
     Active Substance: BISOPROLOL
     Dosage: UNK
  7. PLETAAL [Concomitant]
     Active Substance: CILOSTAZOL
     Dosage: 1 DF, 2X/DAY
  8. BAKTAR [Concomitant]
     Active Substance: SULFAMETHOXAZOLE\TRIMETHOPRIM
     Dosage: 3 DF, WEEKLY (AFTER BREAKFAST ON MONDAY, WEDNESDAY, AND FRIDAY)
     Route: 048
  9. CIMZIA [Concomitant]
     Active Substance: CERTOLIZUMAB PEGOL
     Dosage: 200 MG (1 CYLINDER), ONCE 4 WEEKS
     Route: 058
  10. AMARYL [Concomitant]
     Active Substance: GLIMEPIRIDE
     Dosage: 1 MG, 2X/DAY
  11. METGLUCO [Concomitant]
     Active Substance: METFORMIN HYDROCHLORIDE
     Dosage: 1 DF, 3X/DAY
  12. FORXIGA [Concomitant]
     Active Substance: DAPAGLIFLOZIN
     Dosage: UNK
  13. FOLIAMIN [Concomitant]
     Active Substance: FOLIC ACID
     Dosage: 2 DF, WEEKLY (AFTER SUPPER ON THURSDAY)
     Route: 048

REACTIONS (2)
  - Second primary malignancy [Recovering/Resolving]
  - Lymphoproliferative disorder [Recovering/Resolving]

NARRATIVE: CASE EVENT DATE: 20190513
